FAERS Safety Report 4372098-0 (Version None)
Quarter: 2004Q2

REPORT INFORMATION
  Report Type: 
  Country: None (occurrence: None)
  Receive Date: 20040603
  Receipt Date: 20040603
  Transmission Date: 20050107
  Serious: No
  Sender: FDA-Public Use
  Company Number: None

PATIENT
  Age: 82 Year
  Sex: Male
  Weight: 116 kg

DRUGS (10)
  1. ZOSYN [Suspect]
     Indication: DISEASE RECURRENCE
     Dosage: 3.375 GM Q8 HOURS IV
     Route: 042
     Dates: start: 20040426, end: 20040526
  2. ZOSYN [Suspect]
     Indication: WOUND INFECTION
     Dosage: 3.375 GM Q8 HOURS IV
     Route: 042
     Dates: start: 20040426, end: 20040526
  3. ATENOLOL [Concomitant]
  4. COZAAR [Concomitant]
  5. LASIX [Concomitant]
  6. LOVENOX [Concomitant]
  7. GLIPIZIDE [Concomitant]
  8. KCL TAB [Concomitant]
  9. ASTELIN [Concomitant]
  10. ADVAIR [Concomitant]

REACTIONS (3)
  - BLOOD CREATININE INCREASED [None]
  - NEPHRITIS INTERSTITIAL [None]
  - RENAL TUBULAR NECROSIS [None]
